FAERS Safety Report 25585519 (Version 1)
Quarter: 2025Q3

REPORT INFORMATION
  Report Type: Spontaneous
  Country: AU (occurrence: AU)
  Receive Date: 20250721
  Receipt Date: 20250721
  Transmission Date: 20251021
  Serious: Yes (Other)
  Sender: SANDOZ
  Company Number: AU-AMGEN-AUSSP2025121214

PATIENT
  Age: 17 Year
  Sex: Female

DRUGS (4)
  1. ADALIMUMAB [Suspect]
     Active Substance: ADALIMUMAB
     Indication: Immunosuppression
     Dosage: 40 MG, QW
     Route: 065
  2. METHOTREXATE [Concomitant]
     Active Substance: METHOTREXATE
     Indication: Product used for unknown indication
     Dosage: 20 MG, QW
     Route: 065
  3. PREDNISOLONE [Concomitant]
     Active Substance: PREDNISOLONE
     Indication: Product used for unknown indication
     Route: 065
  4. RANIBIZUMAB [Concomitant]
     Active Substance: RANIBIZUMAB
     Indication: Antiangiogenic therapy
     Route: 065

REACTIONS (8)
  - Macular oedema [Unknown]
  - Retinal degeneration [Unknown]
  - Retinal dystrophy [Unknown]
  - Retinal neovascularisation [Unknown]
  - Retinal oedema [Unknown]
  - Retinal thickening [Unknown]
  - Drug ineffective for unapproved indication [Unknown]
  - Off label use [Unknown]
